FAERS Safety Report 22177953 (Version 1)
Quarter: 2023Q2

REPORT INFORMATION
  Report Type: Spontaneous
  Country: GB (occurrence: None)
  Receive Date: 20230405
  Receipt Date: 20230405
  Transmission Date: 20230722
  Serious: Yes (Other)
  Sender: FDA-Public Use
  Company Number: 2023A077835

PATIENT
  Age: 75 Year
  Sex: Male
  Weight: 76 kg

DRUGS (5)
  1. ANDEXANET ALFA [Suspect]
     Active Substance: ANDEXANET ALFA
     Indication: Elective surgery
     Dosage: 60 MG
     Route: 040
  2. TRANEXAMIC ACID [Concomitant]
     Active Substance: TRANEXAMIC ACID
  3. HEPARIN [Concomitant]
     Active Substance: HEPARIN SODIUM
     Indication: Coagulation time
     Dosage: 20000 UNITS
  4. HEPARIN [Concomitant]
     Active Substance: HEPARIN SODIUM
     Indication: Coagulation time
     Dosage: 10000 UNITS
     Route: 042
  5. EDOXABAN [Concomitant]
     Active Substance: EDOXABAN
     Indication: Coagulation time
     Dosage: 60 MG

REACTIONS (1)
  - Heparin resistance [Unknown]
